FAERS Safety Report 9208339 (Version 4)
Quarter: 2014Q1

REPORT INFORMATION
  Report Type: Spontaneous
  Country: JP (occurrence: JP)
  Receive Date: 20130403
  Receipt Date: 20140318
  Transmission Date: 20141002
  Serious: Yes (Death, Other)
  Sender: FDA-Public Use
  Company Number: JP-BRISTOL-MYERS SQUIBB COMPANY-18743278

PATIENT
  Age: 56 Year
  Sex: Male
  Weight: 33.5 kg

DRUGS (12)
  1. ERBITUX SOLN FOR INF 5MG/ML [Suspect]
     Indication: COLON CANCER
     Route: 041
     Dates: start: 20121219, end: 20130125
  2. FLUOROURACIL [Suspect]
     Indication: COLON CANCER
     Route: 041
     Dates: start: 20121219, end: 20130125
  3. CALCIUM FOLINATE [Suspect]
     Indication: COLON CANCER
     Route: 041
     Dates: start: 20121219, end: 20130125
  4. OXALIPLATIN [Suspect]
     Indication: COLON CANCER
     Route: 041
     Dates: start: 20121219, end: 20130125
  5. TAKEPRON [Concomitant]
     Indication: GASTROOESOPHAGEAL REFLUX DISEASE
     Route: 048
     Dates: start: 20121218, end: 20130302
  6. GASMOTIN [Concomitant]
     Indication: DYSURIA
     Route: 048
     Dates: start: 20121218, end: 20130212
  7. OXINORM [Concomitant]
     Indication: PAIN
     Route: 048
     Dates: start: 20121208, end: 20130221
  8. MEROPEN [Concomitant]
     Indication: ENTEROCOLITIS
     Route: 041
     Dates: start: 20130215, end: 20130227
  9. BIOFERMIN R [Concomitant]
     Indication: ENTEROCOLITIS
     Dosage: TABS
     Route: 048
     Dates: start: 20130215, end: 20130302
  10. NAIXAN [Concomitant]
     Indication: TUMOUR ASSOCIATED FEVER
     Route: 048
     Dates: start: 20130131, end: 20130226
  11. FENTANYL CITRATE [Concomitant]
     Indication: PAIN
     Route: 061
     Dates: start: 20130208, end: 20130302
  12. CELECOXIB [Concomitant]
     Indication: METASTASES TO BONE
     Route: 048
     Dates: start: 20130207, end: 20130226

REACTIONS (3)
  - Pneumonia [Fatal]
  - Enterocolitis [Recovered/Resolved]
  - Neutrophil count decreased [Recovered/Resolved]
